FAERS Safety Report 4819485-1 (Version None)
Quarter: 2005Q4

REPORT INFORMATION
  Report Type: 
  Country: None (occurrence: None)
  Receive Date: 20051103
  Receipt Date: 20051024
  Transmission Date: 20060501
  Serious: Yes (Disabling)
  Sender: FDA-Public Use
  Company Number: PHBS2005NL15838

PATIENT
  Age: 31 Year
  Sex: Female

DRUGS (1)
  1. VOLTAREN [Suspect]

REACTIONS (4)
  - MONOPLEGIA [None]
  - NEUROPATHY [None]
  - PERONEAL NERVE PALSY [None]
  - SCAR [None]
